FAERS Safety Report 6728693-4 (Version None)
Quarter: 2010Q2

REPORT INFORMATION
  Report Type: 
  Country: None (occurrence: None)
  Receive Date: 20100517
  Receipt Date: 20100507
  Transmission Date: 20101027
  Serious: Yes (Hospitalization)
  Sender: FDA-Public Use
  Company Number: FR-B.I. PHARMACEUTICALS,INC./RIDGEFIELD-2010-BP-05456YA

PATIENT
  Sex: Male

DRUGS (4)
  1. TAMSULOSIN HCL [Suspect]
     Route: 048
     Dates: end: 20100121
  2. NICARDIPINE HCL [Concomitant]
  3. TRIVASTAL (PIRIBEDIL) [Concomitant]
  4. THERALENE (ALIMEMAZINE TARTRATE) [Concomitant]

REACTIONS (3)
  - LOSS OF CONSCIOUSNESS [None]
  - MALAISE [None]
  - ORTHOSTATIC HYPOTENSION [None]
